FAERS Safety Report 6627095-9 (Version None)
Quarter: 2010Q1

REPORT INFORMATION
  Report Type: 
  Country: None (occurrence: None)
  Receive Date: 20100311
  Receipt Date: 20090820
  Transmission Date: 20100710
  Serious: No
  Sender: FDA-Public Use
  Company Number: A0801789A

PATIENT
  Sex: Female

DRUGS (1)
  1. NICOTINE POLACRILEX [Suspect]
     Dates: start: 20090513, end: 20090518

REACTIONS (2)
  - GINGIVAL ULCERATION [None]
  - STOMATITIS [None]
